FAERS Safety Report 20134396 (Version 3)
Quarter: 2022Q1

REPORT INFORMATION
  Report Type: Spontaneous
  Country: JP (occurrence: JP)
  Receive Date: 20211201
  Receipt Date: 20220222
  Transmission Date: 20220423
  Serious: Yes (Death, Other)
  Sender: FDA-Public Use
  Company Number: JP-NOVARTISPH-NVSJ2021JP012669

PATIENT
  Age: 78 Year
  Sex: Female

DRUGS (5)
  1. TASIGNA [Suspect]
     Active Substance: NILOTINIB
     Indication: Chronic myeloid leukaemia
     Dosage: UNK
     Route: 048
     Dates: start: 2010, end: 2016
  2. TASIGNA [Suspect]
     Active Substance: NILOTINIB
     Dosage: 150 MG
     Route: 048
     Dates: start: 2018
  3. TASIGNA [Suspect]
     Active Substance: NILOTINIB
     Dosage: 200 MG
     Route: 048
  4. TASIGNA [Suspect]
     Active Substance: NILOTINIB
     Dosage: UNK, QW3
     Route: 048
     Dates: start: 202103
  5. WARFARIN [Concomitant]
     Active Substance: WARFARIN
     Indication: Atrial fibrillation
     Dosage: UNK
     Route: 048

REACTIONS (5)
  - Cardiac failure [Fatal]
  - Death [Fatal]
  - Bradycardia [Unknown]
  - Drug intolerance [Unknown]
  - Incorrect dose administered [Unknown]
